FAERS Safety Report 7346883-7 (Version None)
Quarter: 2011Q1

REPORT INFORMATION
  Report Type: 
  Country: None (occurrence: None)
  Receive Date: 20110303
  Receipt Date: 20110225
  Transmission Date: 20110831
  Serious: Yes (Congenital Anomaly, Other)
  Sender: FDA-Public Use
  Company Number: GB-ACCORD-008242

PATIENT
  Sex: Female
  Weight: 4 kg

DRUGS (1)
  1. TOPIRAMATE [Suspect]
     Dosage: 200 MG TRANSPLACENTAL
     Route: 064

REACTIONS (3)
  - MATERNAL DRUGS AFFECTING FOETUS [None]
  - CLEFT LIP AND PALATE [None]
  - CONGENITAL ANOMALY [None]
